FAERS Safety Report 12335640 (Version 3)
Quarter: 2016Q2

REPORT INFORMATION
  Report Type: Report from Study
  Country: KR (occurrence: KR)
  Receive Date: 20160505
  Receipt Date: 20160624
  Transmission Date: 20160815
  Serious: Yes (Hospitalization, Other)
  Sender: FDA-Public Use
  Company Number: KR-ALEXION-A201603191

PATIENT
  Age: 72 Year
  Sex: Male
  Weight: 58.5 kg

DRUGS (18)
  1. CALCORT [Concomitant]
     Active Substance: DEFLAZACORT
     Indication: PAROXYSMAL NOCTURNAL HAEMOGLOBINURIA
     Dosage: 9 MG, UNK
     Route: 048
     Dates: start: 20130121, end: 20160229
  2. MUCOSTA [Concomitant]
     Active Substance: REBAMIPIDE
     Indication: PROPHYLAXIS AGAINST GASTROINTESTINAL ULCER
     Dosage: 200 MG, UNK
     Route: 048
     Dates: start: 20130108
  3. FOLSAN [Concomitant]
     Active Substance: FOLIC ACID
     Indication: ANAEMIA
     Dosage: 4 MG, UNK
     Route: 048
     Dates: start: 20130107
  4. SOLIRIS [Suspect]
     Active Substance: ECULIZUMAB
     Dosage: 900 MG, Q2W
     Route: 042
     Dates: start: 20160205
  5. NEUROMED                           /00943401/ [Concomitant]
     Indication: CEREBRAL INFARCTION
     Dosage: 1600 MG, UNK
     Route: 048
     Dates: start: 20150908, end: 20160314
  6. SOLIRIS [Suspect]
     Active Substance: ECULIZUMAB
     Indication: PAROXYSMAL NOCTURNAL HAEMOGLOBINURIA
     Dosage: 600 MG, QW
     Route: 042
     Dates: start: 20160108, end: 20160129
  7. RABIET [Concomitant]
     Indication: PROPHYLAXIS AGAINST GASTROINTESTINAL ULCER
     Dosage: 10 MG, UNK
     Route: 048
     Dates: start: 20151012
  8. URSA [Concomitant]
     Indication: LIVER FUNCTION TEST
     Dosage: 300 MG, UNK
     Route: 048
     Dates: start: 20151211, end: 20160229
  9. ASPIRIN                            /00002701/ [Concomitant]
     Active Substance: ASPIRIN
     Dosage: 100 MG, UNK
     Route: 048
     Dates: start: 20160419
  10. GODEX [Concomitant]
     Indication: LIVER FUNCTION TEST
     Dosage: 1401 MG, UNK
     Route: 048
     Dates: start: 20160414
  11. CILOSTAN [Concomitant]
     Dosage: 200 MG, UNK
     Route: 048
     Dates: start: 20160419
  12. EXJADE [Concomitant]
     Active Substance: DEFERASIROX
     Indication: HAEMOSIDEROSIS
     Dosage: 250 MG, UNK
     Route: 048
     Dates: start: 20150930, end: 20160412
  13. CILOSTAN [Concomitant]
     Indication: CEREBRAL INFARCTION
     Dosage: 200 MG, UNK
     Route: 048
     Dates: start: 20151030, end: 20160229
  14. CALCORT [Concomitant]
     Active Substance: DEFLAZACORT
     Dosage: 9 MG, UNK
     Route: 048
     Dates: start: 20160408
  15. ULTRACET [Concomitant]
     Active Substance: ACETAMINOPHEN\TRAMADOL HYDROCHLORIDE
     Indication: ARTHRALGIA
     Dosage: 1450 MG, UNK
     Route: 048
     Dates: start: 20160205
  16. ASPIRIN                            /00002701/ [Concomitant]
     Active Substance: ASPIRIN
     Indication: CEREBRAL INFARCTION
     Dosage: 100 MG, UNK
     Route: 048
     Dates: start: 20151030, end: 20160229
  17. NEUROMED                           /00943401/ [Concomitant]
     Dosage: 1600 MG, UNK
     Route: 048
     Dates: start: 20160419
  18. LEGALON [Concomitant]
     Active Substance: MILK THISTLE
     Indication: LIVER FUNCTION TEST
     Dosage: 420 MG, UNK
     Route: 048
     Dates: start: 20150507, end: 20160229

REACTIONS (1)
  - Large intestinal ulcer [Not Recovered/Not Resolved]

NARRATIVE: CASE EVENT DATE: 20160424
